FAERS Safety Report 5058100-1 (Version None)
Quarter: 2006Q3

REPORT INFORMATION
  Report Type: 
  Country: None (occurrence: None)
  Receive Date: 20060721
  Receipt Date: 20060713
  Transmission Date: 20061208
  Serious: Yes (Hospitalization)
  Sender: FDA-Public Use
  Company Number: PE-GLAXOSMITHKLINE-A0612358A

PATIENT
  Age: 2 Month
  Sex: Male

DRUGS (2)
  1. ACETAMINOPHEN [Suspect]
     Dates: start: 20060707, end: 20060707
  2. PENTA VACCINE [Concomitant]

REACTIONS (3)
  - RASH [None]
  - RASH GENERALISED [None]
  - URTICARIA [None]
